FAERS Safety Report 4845222-0 (Version None)
Quarter: 2005Q4

REPORT INFORMATION
  Report Type: 
  Country: None (occurrence: None)
  Receive Date: 20051129
  Receipt Date: 20051118
  Transmission Date: 20060501
  Serious: Yes (Death, Hospitalization)
  Sender: FDA-Public Use
  Company Number: 200510106BSV

PATIENT
  Age: 82 Year
  Sex: Female

DRUGS (11)
  1. CIPROFLOXACIN [Suspect]
     Indication: URINARY TRACT INFECTION
     Dosage: ORAL
     Route: 048
     Dates: start: 20050712, end: 20050719
  2. HERACILLIN (FLUCLOXACILLIN SODIUM) [Suspect]
     Indication: ERYSIPELAS
     Dates: end: 20050712
  3. BENSYLPENICILLIN [Suspect]
     Indication: ERYSIPELAS
     Dates: start: 20050701
  4. ZINACEF [Suspect]
     Indication: ERYSIPELAS
     Dates: start: 20050701
  5. ENALAPRIL [Concomitant]
  6. FUROSEMIDE [Concomitant]
  7. SPIRONOLAKTON [Concomitant]
  8. TAMOXIFEN [Concomitant]
  9. GLIBENKLAMIDE [Concomitant]
  10. METFORMIN [Concomitant]
  11. TRADOLAN [Concomitant]

REACTIONS (5)
  - ATRIAL FIBRILLATION [None]
  - GENERAL PHYSICAL HEALTH DETERIORATION [None]
  - NEPHROPATHY TOXIC [None]
  - RENAL FAILURE [None]
  - URINARY TRACT INFECTION [None]
